FAERS Safety Report 24293314 (Version 1)
Quarter: 2024Q3

REPORT INFORMATION
  Report Type: Spontaneous
  Country: US (occurrence: None)
  Receive Date: 20240906
  Receipt Date: 20240906
  Transmission Date: 20241016
  Serious: No
  Sender: DOMPE FARMACEUTICI
  Company Number: US-FARMAPROD-202312-3731

PATIENT
  Sex: Female
  Weight: 65.77 kg

DRUGS (11)
  1. OXERVATE [Suspect]
     Active Substance: CENEGERMIN-BKBJ
     Indication: Neurotrophic keratopathy
     Route: 047
     Dates: start: 20231211
  2. OXERVATE [Suspect]
     Active Substance: CENEGERMIN-BKBJ
  3. DICLOFENAC SODIUM [Concomitant]
     Active Substance: DICLOFENAC\DICLOFENAC SODIUM
  4. HYDROCHLOROTHIAZIDE [Concomitant]
     Active Substance: HYDROCHLOROTHIAZIDE
  5. ACYCLOVIR [Concomitant]
     Active Substance: ACYCLOVIR
  6. SYSTANE COMPLETE [Concomitant]
     Active Substance: PROPYLENE GLYCOL
  7. RISEDRONATE SODIUM [Concomitant]
     Active Substance: RISEDRONATE SODIUM
  8. ACETAMINOPHEN [Concomitant]
     Active Substance: ACETAMINOPHEN
  9. DIFLUPREDNATE [Concomitant]
     Active Substance: DIFLUPREDNATE
  10. ILEVRO [Concomitant]
     Active Substance: NEPAFENAC
  11. PAXLOVID [Concomitant]
     Active Substance: NIRMATRELVIR\RITONAVIR
     Dosage: 300 MG NIRMATRELVIR AND 100 MG RITONAVIR, DOSE PACK

REACTIONS (6)
  - Laryngitis [Unknown]
  - Sinusitis [Unknown]
  - COVID-19 [Unknown]
  - Device use issue [Unknown]
  - Eye swelling [Not Recovered/Not Resolved]
  - Vision blurred [Not Recovered/Not Resolved]
